FAERS Safety Report 4545777-X (Version None)
Quarter: 2005Q1

REPORT INFORMATION
  Report Type: 
  Country: None (occurrence: None)
  Receive Date: 20050104
  Receipt Date: 20050104
  Transmission Date: 20050727
  Serious: Yes (Death)
  Sender: FDA-Public Use
  Company Number: None

PATIENT
  Age: 23 Month
  Sex: Female
  Weight: 9.0719 kg

DRUGS (3)
  1. PHENERGAN SUPPOSITORY [Suspect]
     Dosage: SUPPOSITORY
  2. EPINEPHRINE [Suspect]
     Dosage: DRUG DELIVERY SYSTEM
  3. PHENERGAN SUPPOSITORY [Suspect]
     Dosage: SUPPOSITORY

REACTIONS (4)
  - ATRIOVENTRICULAR BLOCK [None]
  - CARDIO-RESPIRATORY ARREST [None]
  - MEDICATION ERROR [None]
  - OVERDOSE [None]
